FAERS Safety Report 22144588 (Version 1)
Quarter: 2023Q1

REPORT INFORMATION
  Report Type: Report from Study
  Country: IT (occurrence: IT)
  Receive Date: 20230328
  Receipt Date: 20230328
  Transmission Date: 20230418
  Serious: Yes (Other)
  Sender: FDA-Public Use
  Company Number: IT-CELLTRION INC.-2023IT006164

PATIENT

DRUGS (9)
  1. BEVACIZUMAB [Suspect]
     Active Substance: BEVACIZUMAB
     Indication: Colon cancer
     Dosage: 345 MG, EVERY 14 DAYS
     Route: 042
     Dates: start: 20221011
  2. FLUOROURACIL [Suspect]
     Active Substance: FLUOROURACIL
     Indication: Colon cancer
     Dosage: 4665 MG, EVERY 14 DAYS
     Route: 042
     Dates: start: 20221011
  3. IRINOTECAN [Suspect]
     Active Substance: IRINOTECAN
     Indication: Colon cancer
     Dosage: 290 MG, EVERY 14 DAYS
     Route: 042
     Dates: start: 20221011
  4. CHOLECALCIFEROL [Concomitant]
     Active Substance: CHOLECALCIFEROL
  5. PREDNISONE [Concomitant]
     Active Substance: PREDNISONE
     Dosage: 25 MG, EVERY 24 HOURS
     Route: 048
  6. GLATIRAMER ACETATE [Concomitant]
     Active Substance: GLATIRAMER ACETATE
  7. DEURSIL [Concomitant]
     Active Substance: URSODIOL
     Dosage: 450 MG, EVERY 24 HOURS
     Route: 048
  8. PANTOPRAZOLE SODIUM [Concomitant]
     Active Substance: PANTOPRAZOLE SODIUM
     Dosage: 40 MG, EVERY 24 HOUR
     Route: 048
  9. LYRICA [Concomitant]
     Active Substance: PREGABALIN
     Dosage: 2 DF, EVERY 24 HOURS
     Route: 048

REACTIONS (3)
  - Pulmonary embolism [Recovering/Resolving]
  - Asthenia [Not Recovered/Not Resolved]
  - Underdose [Unknown]

NARRATIVE: CASE EVENT DATE: 20230201
